FAERS Safety Report 12647520 (Version 1)
Quarter: 2016Q3

REPORT INFORMATION
  Report Type: Spontaneous
  Country: US (occurrence: None)
  Receive Date: 20160811
  Receipt Date: 20160811
  Transmission Date: 20161109
  Serious: Yes (Hospitalization)
  Sender: FDA-Public Use
  Company Number: None

PATIENT
  Age: 47 Year
  Sex: Female
  Weight: 127.5 kg

DRUGS (3)
  1. DOXORUBICIN HYDROCHLORIDE. [Suspect]
     Active Substance: DOXORUBICIN HYDROCHLORIDE
     Dates: end: 20160510
  2. CYCLOPHOSPHAMIDE. [Suspect]
     Active Substance: CYCLOPHOSPHAMIDE
     Dates: end: 20160510
  3. TAXOL [Suspect]
     Active Substance: PACLITAXEL
     Dates: end: 20160705

REACTIONS (9)
  - Vomiting [None]
  - Fatigue [None]
  - Mucosal inflammation [None]
  - Palmar-plantar erythrodysaesthesia syndrome [None]
  - Headache [None]
  - Neck pain [None]
  - Nausea [None]
  - Bronchitis [None]
  - Chills [None]

NARRATIVE: CASE EVENT DATE: 20160715
